FAERS Safety Report 5385219-8 (Version None)
Quarter: 2007Q3

REPORT INFORMATION
  Report Type: 
  Country: None (occurrence: None)
  Receive Date: 20070706
  Receipt Date: 20070706
  Transmission Date: 20080115
  Serious: Yes (Life-Threatening, Hospitalization)
  Sender: FDA-Public Use
  Company Number: None

PATIENT
  Sex: Male
  Weight: 47.6277 kg

DRUGS (1)
  1. HEPARIN [Suspect]
     Indication: HAEMODIALYSIS
     Dosage: 5000 UNITS PRIOR TO DIALYSI OTHER
     Route: 050
     Dates: start: 20070330

REACTIONS (1)
  - HEPARIN-INDUCED THROMBOCYTOPENIA [None]
